FAERS Safety Report 24125022 (Version 2)
Quarter: 2024Q3

REPORT INFORMATION
  Report Type: Report from Study
  Country: US (occurrence: US)
  Receive Date: 20240723
  Receipt Date: 20240817
  Transmission Date: 20241016
  Serious: Yes (Hospitalization)
  Sender: ROCHE
  Company Number: US-ROCHE-10000027380

PATIENT
  Age: 31 Year
  Sex: Female
  Weight: 154.22 kg

DRUGS (7)
  1. XOLAIR PFS [Suspect]
     Active Substance: OMALIZUMAB
     Indication: Chronic spontaneous urticaria
     Route: 058
  2. XOLAIR PFS [Suspect]
     Active Substance: OMALIZUMAB
     Indication: Idiopathic urticaria
  3. AUVI-Q [Concomitant]
     Active Substance: EPINEPHRINE
  4. EPINEPHRINE [Concomitant]
     Active Substance: EPINEPHRINE
  5. FAMOTIDINE [Concomitant]
     Active Substance: FAMOTIDINE
  6. OTEZLA [Concomitant]
     Active Substance: APREMILAST
  7. ZYRTEC [Concomitant]
     Active Substance: CETIRIZINE HYDROCHLORIDE

REACTIONS (3)
  - Urticaria [Unknown]
  - Swelling face [Unknown]
  - Eye swelling [Unknown]
